FAERS Safety Report 12495582 (Version 1)
Quarter: 2016Q2

REPORT INFORMATION
  Report Type: Spontaneous
  Country: US (occurrence: US)
  Receive Date: 20160624
  Receipt Date: 20160624
  Transmission Date: 20160815
  Serious: No
  Sender: FDA-Public Use
  Company Number: US-BAUSCH-BL-2016-006421

PATIENT
  Age: 47 Year
  Sex: Male
  Weight: 88.53 kg

DRUGS (3)
  1. GENTAMICIN SULFATE OPHTHALMIC SOLUTION USP 0.3% [Suspect]
     Active Substance: GENTAMICIN SULFATE
     Indication: CONJUNCTIVITIS
     Dosage: ONE TO TWO DROPS IN EACH EYE EVERY 2 HOURS FOR 2 DAYS
     Route: 047
     Dates: start: 20160302
  2. FEXOFENADINE [Concomitant]
     Active Substance: FEXOFENADINE\FEXOFENADINE HYDROCHLORIDE
     Indication: HYPERSENSITIVITY
     Route: 048
  3. GENTAMICIN SULFATE OPHTHALMIC SOLUTION USP 0.3% [Suspect]
     Active Substance: GENTAMICIN SULFATE
     Route: 047
     Dates: start: 20160312

REACTIONS (2)
  - Vasodilatation [Not Recovered/Not Resolved]
  - Ocular hyperaemia [Not Recovered/Not Resolved]

NARRATIVE: CASE EVENT DATE: 201603
